FAERS Safety Report 5102982-1 (Version None)
Quarter: 2006Q3

REPORT INFORMATION
  Report Type: 
  Country: None (occurrence: None)
  Receive Date: 20060907
  Receipt Date: 20060903
  Transmission Date: 20061208
  Serious: Yes (Hospitalization)
  Sender: FDA-Public Use
  Company Number: HQWYE861222AUG06

PATIENT
  Age: 48 Year
  Sex: Male

DRUGS (3)
  1. RAPAMUNE [Suspect]
     Indication: PROPHYLAXIS AGAINST TRANSPLANT REJECTION
     Dosage: 3 MG 1X PER 1 DAY ORAL
     Route: 048
     Dates: start: 20060701, end: 20060816
  2. CELLCEPT [Concomitant]
  3. PREDNISONE TAB [Concomitant]

REACTIONS (5)
  - CHOLESTASIS [None]
  - CONCOMITANT DISEASE PROGRESSION [None]
  - HEPATIC FAILURE [None]
  - HEPATIC FIBROSIS [None]
  - TERMINAL STATE [None]
